FAERS Safety Report 23077103 (Version 1)
Quarter: 2023Q4

REPORT INFORMATION
  Report Type: Report from Study
  Country: US (occurrence: US)
  Receive Date: 20231018
  Receipt Date: 20231018
  Transmission Date: 20240109
  Serious: No
  Sender: FDA-Public Use
  Company Number: US-ACADIA PHARMACEUTICALS INC.-ACA-2023-TRF-004331

PATIENT
  Sex: Female

DRUGS (3)
  1. DAYBUE [Suspect]
     Active Substance: TROFINETIDE
     Indication: Rett syndrome
     Dosage: 40 MILLILITER, BID
     Route: 048
     Dates: start: 2023
  2. DAYBUE [Suspect]
     Active Substance: TROFINETIDE
     Dosage: 20 ML IN MORNING AND 40 ML IN EVENING, BID
     Route: 048
  3. FIBER [Concomitant]

REACTIONS (4)
  - Gastrooesophageal reflux disease [Unknown]
  - Prescribed underdose [Unknown]
  - Retching [Unknown]
  - Vomiting [Unknown]
